FAERS Safety Report 8375815-8 (Version None)
Quarter: 2012Q1

REPORT INFORMATION
  Report Type: 
  Country: None (occurrence: None)
  Receive Date: 20120323
  Receipt Date: 20110804
  Transmission Date: 20120608
  Serious: Yes (Other)
  Sender: FDA-Public Use
  Company Number: 163-21880-11020100

PATIENT
  Age: 69 Year
  Sex: Male

DRUGS (13)
  1. MS CONTIN [Concomitant]
  2. REVLIMID [Suspect]
     Indication: MULTIPLE MYELOMA
     Dosage: 10 MG, 1 IN 1 D, PO
     Route: 048
     Dates: start: 20090901, end: 20110201
  3. PRILOSEC [Concomitant]
  4. COZAAR [Concomitant]
  5. NORVASC [Concomitant]
  6. DOXAZOCIN (DOXAZOSIN MESILATE) [Concomitant]
  7. COREG [Concomitant]
  8. OXYCODONE HCL [Concomitant]
  9. MORPHINE SULFATE [Concomitant]
  10. MEROPENEM [Concomitant]
  11. CELEXA [Concomitant]
  12. METFORMIN HCL [Concomitant]
  13. FLEXERIL [Concomitant]

REACTIONS (4)
  - URTICARIA [None]
  - RASH GENERALISED [None]
  - PYREXIA [None]
  - DYSGEUSIA [None]
